FAERS Safety Report 8517317-1 (Version None)
Quarter: 2012Q3

REPORT INFORMATION
  Report Type: 
  Country: None (occurrence: None)
  Receive Date: 20120718
  Receipt Date: 20120706
  Transmission Date: 20120928
  Serious: Yes (Hospitalization)
  Sender: FDA-Public Use
  Company Number: GB-PFIZER INC-2012170789

PATIENT
  Age: 50 Year
  Sex: Female

DRUGS (5)
  1. FLUCONAZOLE [Interacting]
     Indication: ORAL CANDIDIASIS
     Dosage: 150 MG 1X/DAY
     Route: 048
  2. DARUNAVIR ETHANOLATE [Suspect]
     Indication: HIV INFECTION
     Dosage: UNK
     Route: 048
  3. ABACAVIR [Suspect]
     Indication: HIV INFECTION
     Dosage: UNK
     Route: 065
  4. LAMIVUDINE [Suspect]
     Indication: HIV INFECTION
     Dosage: UNK
     Route: 065
  5. RITONAVIR [Interacting]
     Indication: HIV INFECTION
     Dosage: UNK
     Route: 065

REACTIONS (2)
  - DRUG INTERACTION [None]
  - ADRENAL INSUFFICIENCY [None]
